FAERS Safety Report 5065332-5 (Version None)
Quarter: 2006Q3

REPORT INFORMATION
  Report Type: 
  Country: None (occurrence: None)
  Receive Date: 20060731
  Receipt Date: 20060720
  Transmission Date: 20061208
  Serious: Yes (Other)
  Sender: FDA-Public Use
  Company Number: DE-JNJFOC-20060604355

PATIENT
  Age: 68 Year
  Sex: Male
  Weight: 60 kg

DRUGS (8)
  1. REMICADE [Suspect]
     Indication: RHEUMATOID ARTHRITIS
     Dosage: 30 INFUSIONS IN TOTAL
     Route: 042
  2. METHOTREXATE [Concomitant]
     Indication: RHEUMATOID ARTHRITIS
     Route: 065
  3. PREDNISOLONE [Concomitant]
     Indication: RHEUMATOID ARTHRITIS
     Route: 048
  4. DICLOFENAC [Concomitant]
     Indication: RHEUMATOID ARTHRITIS
     Route: 048
  5. AZATHIOPRINE SODIUM [Concomitant]
     Route: 065
  6. CHLOROQUINE PHOSPHATE [Concomitant]
     Route: 065
  7. SULFASALAZINE [Concomitant]
     Route: 065
  8. LEFLUNOMIDE [Concomitant]

REACTIONS (1)
  - B-CELL LYMPHOMA STAGE II [None]
